FAERS Safety Report 4782701-9 (Version None)
Quarter: 2005Q3

REPORT INFORMATION
  Report Type: 
  Country: None (occurrence: None)
  Receive Date: 20050929
  Receipt Date: 20050729
  Transmission Date: 20060218
  Serious: No
  Sender: FDA-Public Use
  Company Number: 412687

PATIENT
  Sex: Male

DRUGS (3)
  1. COREG [Suspect]
     Indication: HYPERTENSION
     Dosage: 25MG TWICE PER DAY
     Route: 048
  2. EFFEXOR [Concomitant]
  3. LITHIUM [Concomitant]

REACTIONS (4)
  - HYPERSOMNIA [None]
  - LETHARGY [None]
  - MENTAL IMPAIRMENT [None]
  - POLLAKIURIA [None]
